FAERS Safety Report 10620180 (Version 1)
Quarter: 2014Q4

REPORT INFORMATION
  Report Type: Spontaneous
  Country: US (occurrence: None)
  Receive Date: 20141201
  Receipt Date: 20141201
  Transmission Date: 20150529
  Serious: No
  Sender: FDA-Public Use
  Company Number: None

PATIENT
  Age: 63 Year
  Sex: Male
  Weight: 104.33 kg

DRUGS (1)
  1. AMOX/K CLAV (SUBSTITUTED FOR AUGM [Suspect]
     Active Substance: AMOXICILLIN\CLAVULANATE POTASSIUM

REACTIONS (2)
  - Dyspepsia [None]
  - Gastrointestinal pain [None]

NARRATIVE: CASE EVENT DATE: 20141119
